FAERS Safety Report 8116014-4 (Version None)
Quarter: 2012Q1

REPORT INFORMATION
  Report Type: 
  Country: None (occurrence: None)
  Receive Date: 20120206
  Receipt Date: 20120127
  Transmission Date: 20120608
  Serious: Yes (Hospitalization)
  Sender: FDA-Public Use
  Company Number: SE-ROCHE-1034306

PATIENT
  Age: 76 Year
  Sex: Male

DRUGS (5)
  1. IFOSFAMIDE [Suspect]
     Indication: LYMPHOCYTIC LYMPHOMA
     Route: 042
     Dates: start: 20110801, end: 20110801
  2. PREDNISOLONE [Suspect]
     Indication: LYMPHOCYTIC LYMPHOMA
     Dates: start: 20110801, end: 20110801
  3. MABTHERA [Suspect]
     Indication: LYMPHOCYTIC LYMPHOMA
     Route: 042
     Dates: start: 20110801, end: 20110801
  4. VEPESID [Suspect]
     Indication: LYMPHOCYTIC LYMPHOMA
     Dates: start: 20110801, end: 20110801
  5. METHOTREXATE [Suspect]
     Indication: LYMPHOCYTIC LYMPHOMA
     Dates: start: 20110801, end: 20110801

REACTIONS (3)
  - NEUTROPENIA [None]
  - STOMATITIS [None]
  - PYREXIA [None]
